FAERS Safety Report 5300196-3 (Version None)
Quarter: 2007Q2

REPORT INFORMATION
  Report Type: 
  Country: None (occurrence: None)
  Receive Date: 20070411
  Receipt Date: 20070409
  Transmission Date: 20071010
  Serious: Yes (Other)
  Sender: FDA-Public Use
  Company Number: THQ2007A00175

PATIENT
  Age: 64 Year
  Sex: Female

DRUGS (7)
  1. LANSOPRAZOLE [Suspect]
     Indication: HAEMORRHAGE
     Dosage: 30 MG (30 MG, 1 IN 1 D) PER ORAL
     Route: 048
     Dates: start: 20010502
  2. LANSOPRAZOLE [Suspect]
     Indication: HAEMORRHAGE
     Dosage: 30 MG (30 MG, 1 IN 1 D) PER ORAL
     Route: 048
     Dates: start: 20060101
  3. WARFARIN SODIUM [Concomitant]
  4. FUROSEMIDE [Concomitant]
  5. CALCICHEW (CALCIUM CARBONATE) [Concomitant]
  6. SPIRONOLACTONE [Concomitant]
  7. LEVOTHYROXINE SODIUM [Concomitant]

REACTIONS (7)
  - CONSTIPATION [None]
  - EYELID OEDEMA [None]
  - HYPERVENTILATION [None]
  - OSTEOPOROSIS [None]
  - PULMONARY HYPERTENSION [None]
  - PULMONARY SARCOIDOSIS [None]
  - SWELLING FACE [None]
